FAERS Safety Report 7213467-0 (Version None)
Quarter: 2010Q4

REPORT INFORMATION
  Report Type: 
  Country: None (occurrence: None)
  Receive Date: 20101229
  Receipt Date: 20101213
  Transmission Date: 20110411
  Serious: Yes (Other)
  Sender: FDA-Public Use
  Company Number: DSA_44513_2010

PATIENT
  Sex: Male

DRUGS (8)
  1. NIFEDICAL 30 MG (NOT SPECIFIED) [Suspect]
     Indication: HYPERTENSION
     Dosage: (30 MG, EVERY SIX HOURS)
  2. NIFEDIPINE [Suspect]
     Indication: HYPERTENSION
     Dosage: (60 MG, EVERY 8 HOURS)
  3. HYDRALAZINE [Suspect]
     Indication: HYPERTENSION
     Dosage: (DF)
  4. DIGOXIN [Concomitant]
  5. FAMOTIDINE [Concomitant]
  6. IRON [Concomitant]
  7. FIBER [Concomitant]
  8. CARVEDILOL [Concomitant]

REACTIONS (5)
  - COLON OPERATION [None]
  - DRUG EFFECT DECREASED [None]
  - MEDICATION RESIDUE [None]
  - OEDEMA PERIPHERAL [None]
  - OVERDOSE [None]
